FAERS Safety Report 15884239 (Version 1)
Quarter: 2019Q1

REPORT INFORMATION
  Report Type: Spontaneous
  Country: US (occurrence: US)
  Receive Date: 20190129
  Receipt Date: 20190129
  Transmission Date: 20190417
  Serious: No
  Sender: FDA-Public Use
  Company Number: US-PFIZER INC-2019040376

PATIENT
  Age: 64 Year
  Sex: Male
  Weight: 112.47 kg

DRUGS (1)
  1. GABAPENTIN. [Suspect]
     Active Substance: GABAPENTIN
     Indication: NEURALGIA
     Dosage: 1200 MG, 3X/DAY(3- 400MG CAPSULES THREE TIMES DAILY, A TOTAL OF 3600MG)

REACTIONS (1)
  - Drug ineffective for unapproved indication [Unknown]
